FAERS Safety Report 4588056-7 (Version None)
Quarter: 2005Q1

REPORT INFORMATION
  Report Type: 
  Country: None (occurrence: None)
  Receive Date: 20050216
  Receipt Date: 20050201
  Transmission Date: 20050727
  Serious: Yes (Life-Threatening)
  Sender: FDA-Public Use
  Company Number: JP_050205772

PATIENT
  Age: 52 Year
  Sex: Male

DRUGS (2)
  1. ZYPREXA [Suspect]
     Indication: SCHIZOPHRENIA
     Dosage: 10 MG DAY
     Dates: start: 20041216, end: 20040112
  2. CHLORPROMAZINE HCL [Concomitant]

REACTIONS (4)
  - CARDIAC ARREST [None]
  - COMA [None]
  - INJURY ASPHYXIATION [None]
  - VOMITING [None]
